FAERS Safety Report 6844963-3 (Version None)
Quarter: 2010Q3

REPORT INFORMATION
  Report Type: 
  Country: None (occurrence: None)
  Receive Date: 20100715
  Receipt Date: 20100706
  Transmission Date: 20110219
  Serious: Yes (Congenital Anomaly)
  Sender: FDA-Public Use
  Company Number: US-GILEAD-2010-0030152

PATIENT

DRUGS (7)
  1. EMTRIVA [Suspect]
     Indication: HIV INFECTION
     Route: 064
  2. VIREAD [Suspect]
     Indication: HIV INFECTION
     Route: 064
  3. ZIAGEN [Concomitant]
     Indication: HIV INFECTION
     Route: 064
  4. SUSTIVA [Concomitant]
     Indication: HIV INFECTION
     Route: 064
  5. EPIVIR [Concomitant]
     Indication: HIV INFECTION
     Route: 064
  6. VIRACEPT [Concomitant]
     Indication: HIV INFECTION
     Route: 064
  7. RETROVIR [Concomitant]
     Indication: HIV INFECTION
     Route: 064

REACTIONS (1)
  - GASTROSCHISIS [None]
